FAERS Safety Report 5990585-6 (Version None)
Quarter: 2008Q4

REPORT INFORMATION
  Report Type: 
  Country: None (occurrence: None)
  Receive Date: 20081211
  Receipt Date: 20081205
  Transmission Date: 20090506
  Serious: Yes (Congenital Anomaly)
  Sender: FDA-Public Use
  Company Number: A0682202A

PATIENT
  Weight: 3.6 kg

DRUGS (4)
  1. PAXIL [Suspect]
     Indication: BIPOLAR DISORDER
  2. PROMETHAZINE [Concomitant]
     Dosage: 25MG AS REQUIRED
     Dates: start: 20051016
  3. VITAMIN TAB [Concomitant]
     Dates: start: 20050701
  4. ZOLOFT [Concomitant]
     Dosage: 50MG PER DAY
     Dates: start: 20060101

REACTIONS (2)
  - DRUG EXPOSURE DURING PREGNANCY [None]
  - VENTRICULAR SEPTAL DEFECT [None]
